FAERS Safety Report 21997170 (Version 1)
Quarter: 2023Q1

REPORT INFORMATION
  Report Type: Spontaneous
  Country: JP (occurrence: JP)
  Receive Date: 20230216
  Receipt Date: 20230216
  Transmission Date: 20230418
  Serious: Yes (Death, Hospitalization)
  Sender: FDA-Public Use
  Company Number: None

PATIENT
  Age: 68 Year
  Sex: Female
  Weight: 39 kg

DRUGS (7)
  1. ACYCLOVIR [Suspect]
     Active Substance: ACYCLOVIR
     Indication: Herpes zoster
  2. ACYCLOVIR [Suspect]
     Active Substance: ACYCLOVIR
  3. PREDNISOLONE [Concomitant]
     Active Substance: PREDNISOLONE
     Indication: Nephrotic syndrome
  4. PREDNISOLONE [Concomitant]
     Active Substance: PREDNISOLONE
  5. MIZORIBINE [Concomitant]
     Active Substance: MIZORIBINE
     Indication: Nephrotic syndrome
  6. MEROPENEM [Concomitant]
     Active Substance: MEROPENEM
     Indication: Sepsis
  7. VANCOMYCIN [Concomitant]
     Active Substance: VANCOMYCIN
     Indication: Sepsis

REACTIONS (1)
  - Drug resistance [Fatal]
